FAERS Safety Report 8107240-9 (Version None)
Quarter: 2012Q1

REPORT INFORMATION
  Report Type: 
  Country: None (occurrence: None)
  Receive Date: 20120202
  Receipt Date: 20120124
  Transmission Date: 20120608
  Serious: Yes (Other)
  Sender: FDA-Public Use
  Company Number: US-GENZYME-CERZ-1002376

PATIENT
  Sex: Male
  Weight: 78.6 kg

DRUGS (1)
  1. CEREZYME [Suspect]
     Indication: GAUCHER'S DISEASE
     Dosage: 30.5 U/KG, Q2W
     Route: 042
     Dates: start: 19900501

REACTIONS (1)
  - BONE INFARCTION [None]
